FAERS Safety Report 9068732 (Version 6)
Quarter: 2013Q2

REPORT INFORMATION
  Report Type: Spontaneous
  Country: US (occurrence: US)
  Receive Date: 20130128
  Receipt Date: 20130607
  Transmission Date: 20140414
  Serious: Yes (Hospitalization, Other)
  Sender: FDA-Public Use
  Company Number: US-009507513-1301USA010919

PATIENT
  Sex: Female
  Weight: 60.45 kg

DRUGS (7)
  1. FOSAMAX [Suspect]
     Indication: OSTEOPOROSIS
     Dosage: 70 MG, QW
     Route: 048
     Dates: start: 200210, end: 201104
  2. FOSAMAX [Suspect]
     Indication: OSTEOARTHRITIS
  3. VITAMINS (UNSPECIFIED) [Concomitant]
     Dosage: 1 DF, QD
     Dates: start: 1997
  4. CALCIUM (UNSPECIFIED) [Concomitant]
     Dosage: 1200 MG, QD
     Dates: start: 1990
  5. OMEPRAZOLE [Concomitant]
     Dosage: 20 MG, QD
     Route: 048
     Dates: start: 1980
  6. ALENDRONATE SODIUM [Suspect]
     Indication: OSTEOPOROSIS
     Dosage: 70 MG, QW
     Route: 048
     Dates: start: 200802, end: 201102
  7. CHOLECALCIFEROL [Concomitant]
     Indication: OSTEOARTHRITIS

REACTIONS (19)
  - Femur fracture [Unknown]
  - Intramedullary rod insertion [Unknown]
  - Rotator cuff repair [Unknown]
  - Knee arthroplasty [Unknown]
  - Tooth extraction [Unknown]
  - Dental prosthesis user [Unknown]
  - Pain [Unknown]
  - Rotator cuff syndrome [Unknown]
  - Arthritis [Unknown]
  - Fall [Unknown]
  - Cerebral atrophy [Unknown]
  - Arthritis [Unknown]
  - Anaemia [Unknown]
  - Hypothermia [Recovered/Resolved]
  - Cerebral ischaemia [Not Recovered/Not Resolved]
  - Hypertension [Unknown]
  - Osteoarthritis [Unknown]
  - Osteopenia [Unknown]
  - Off label use [Unknown]
